FAERS Safety Report 7820190-8 (Version None)
Quarter: 2011Q4

REPORT INFORMATION
  Report Type: 
  Country: None (occurrence: None)
  Receive Date: 20111018
  Receipt Date: 20111011
  Transmission Date: 20120403
  Serious: Yes (Hospitalization)
  Sender: FDA-Public Use
  Company Number: KR-PFIZER INC-2011242689

PATIENT
  Age: 58 Year
  Sex: Male

DRUGS (2)
  1. SUNITINIB MALATE [Suspect]
     Indication: GASTROINTESTINAL STROMAL TUMOUR
     Dosage: 50 MG, 1X/DAY 4 WEEKS ON/ 2 WEEKS OFF
     Route: 048
  2. FAMOTIDINE [Concomitant]
     Dosage: 40 MG, 1X/DAY

REACTIONS (1)
  - HYPERAMMONAEMIC ENCEPHALOPATHY [None]
